FAERS Safety Report 5722000-1 (Version None)
Quarter: 2008Q2

REPORT INFORMATION
  Report Type: 
  Country: None (occurrence: None)
  Receive Date: 20080429
  Receipt Date: 20080422
  Transmission Date: 20081010
  Serious: Yes (Life-Threatening, Hospitalization)
  Sender: FDA-Public Use
  Company Number: FR-BOEHRINGER INGELHEIM GMBH, GERMANY-2008-FF-00328FF

PATIENT
  Age: 79 Year
  Sex: Male

DRUGS (4)
  1. PERSANTINE [Suspect]
     Route: 048
     Dates: end: 20080120
  2. LORAZEPAM [Concomitant]
  3. ARTOTEC [Concomitant]
  4. STABLON [Concomitant]

REACTIONS (1)
  - SUBDURAL HAEMATOMA [None]
